FAERS Safety Report 19994647 (Version 2)
Quarter: 2021Q4

REPORT INFORMATION
  Report Type: Spontaneous
  Country: JP (occurrence: JP)
  Receive Date: 20211026
  Receipt Date: 20211111
  Transmission Date: 20220303
  Serious: Yes (Death, Other)
  Sender: FDA-Public Use
  Company Number: JP-ASTELLAS-2021JP019600

PATIENT
  Age: 89 Year
  Sex: Female

DRUGS (2)
  1. MICAFUNGIN SODIUM [Suspect]
     Active Substance: MICAFUNGIN SODIUM
     Indication: Respiratory tract infection
     Dosage: 100 MG/DAY, UNKNOWN FREQ.
     Route: 041
     Dates: start: 20211008, end: 20211010
  2. MEROPENEM [Suspect]
     Active Substance: MEROPENEM
     Indication: Product used for unknown indication
     Dosage: 0.5 G/DAY, UNKNOWN FREQ.
     Route: 042
     Dates: start: 20211008, end: 20211010

REACTIONS (2)
  - Death [Fatal]
  - Blood bilirubin increased [Unknown]

NARRATIVE: CASE EVENT DATE: 20211012
